FAERS Safety Report 13130656 (Version 2)
Quarter: 2017Q1

REPORT INFORMATION
  Report Type: Spontaneous
  Country: JP (occurrence: JP)
  Receive Date: 20170119
  Receipt Date: 20170207
  Transmission Date: 20170428
  Serious: Yes (Hospitalization)
  Sender: FDA-Public Use
  Company Number: JP-ELI_LILLY_AND_COMPANY-JP201612008509

PATIENT
  Sex: Male
  Weight: 61 kg

DRUGS (3)
  1. PRASUGREL HYDROCHLORIDE [Suspect]
     Active Substance: PRASUGREL HYDROCHLORIDE
     Indication: MYOCARDIAL INFARCTION
     Dosage: 3.75 MG, QD
     Route: 048
     Dates: start: 20150826, end: 20161213
  2. TENELIA [Concomitant]
     Active Substance: TENELIGLIPTIN
     Indication: DIABETES MELLITUS
     Dosage: 20 MG, QD
     Route: 048
     Dates: start: 20150826
  3. TANATRIL [Concomitant]
     Active Substance: IMIDAPRIL
     Indication: HYPERTENSION
     Dosage: 2.5 MG, QD
     Route: 048

REACTIONS (5)
  - Hypoxia [Recovering/Resolving]
  - Interstitial lung disease [Recovering/Resolving]
  - Haemoptysis [Recovering/Resolving]
  - Pulmonary alveolar haemorrhage [Recovering/Resolving]
  - Dyspnoea exertional [Recovering/Resolving]

NARRATIVE: CASE EVENT DATE: 20161212
